FAERS Safety Report 9312133 (Version 1)
Quarter: 2013Q2

REPORT INFORMATION
  Report Type: Spontaneous
  Country: JP (occurrence: JP)
  Receive Date: 20130528
  Receipt Date: 20130528
  Transmission Date: 20140414
  Serious: Yes (Hospitalization)
  Sender: FDA-Public Use
  Company Number: JP-BAYER-2013-062532

PATIENT
  Sex: 0

DRUGS (1)
  1. BAYER ASPIRIN [Suspect]
     Dosage: DAILY DOSE 60 DF
     Route: 048

REACTIONS (3)
  - Rhabdomyolysis [None]
  - Renal failure acute [None]
  - Intentional overdose [None]
